FAERS Safety Report 13881388 (Version 1)
Quarter: 2017Q3

REPORT INFORMATION
  Report Type: Spontaneous
  Country: US (occurrence: US)
  Receive Date: 20170815
  Receipt Date: 20170815
  Transmission Date: 20171127
  Serious: Yes (Other)
  Sender: FDA-Public Use
  Company Number: None

PATIENT
  Age: 58 Year
  Sex: Female
  Weight: 62.1 kg

DRUGS (4)
  1. MYRBETRIQ [Suspect]
     Active Substance: MIRABEGRON
     Indication: MICTURITION URGENCY
     Dosage: ?          QUANTITY:1 TABLET(S);?
     Route: 048
     Dates: start: 20170322, end: 20170710
  2. PRELIEF [Concomitant]
     Active Substance: CALCIUM GLYCEROPHOSPHATE
  3. NITROFUR MAC [Suspect]
     Active Substance: NITROFURANTOIN
     Indication: PRODUCT USED FOR UNKNOWN INDICATION
     Dosage: ?          QUANTITY:1 CAPSULE(S);?
     Route: 048
     Dates: start: 20170323, end: 20170710
  4. CRANBERRY WITH VITAMIN C [Concomitant]

REACTIONS (9)
  - Asthenia [None]
  - Platelet count decreased [None]
  - Headache [None]
  - Halo vision [None]
  - Contusion [None]
  - Tremor [None]
  - White blood cell count decreased [None]
  - Chest discomfort [None]
  - Fatigue [None]

NARRATIVE: CASE EVENT DATE: 20170708
